FAERS Safety Report 14542913 (Version 2)
Quarter: 2019Q1

REPORT INFORMATION
  Report Type: Spontaneous
  Country: NL (occurrence: NL)
  Receive Date: 20180216
  Receipt Date: 20190304
  Transmission Date: 20190417
  Serious: Yes (Hospitalization)
  Sender: FDA-Public Use
  Company Number: PHHY2017NL200889

PATIENT

DRUGS (8)
  1. OXALIPLATIN. [Suspect]
     Active Substance: OXALIPLATIN
     Indication: COLORECTAL CANCER
     Dosage: 85 MG/M2, BIW (2 WEEK)
     Route: 042
     Dates: start: 20170413
  2. 5-FLUOROURACIL [Suspect]
     Active Substance: FLUOROURACIL
     Dosage: 400 MG/M2, BIW (2 WEEK)
     Route: 040
     Dates: start: 20170630
  3. LEUCOVORIN. [Suspect]
     Active Substance: LEUCOVORIN
     Indication: COLORECTAL CANCER
     Dosage: 400 MG/M2, BIW (2 WEEK)
     Route: 042
     Dates: start: 20170413
  4. BEVACIZUMAB. [Suspect]
     Active Substance: BEVACIZUMAB
     Dosage: 5 MG/KG, BIW
     Route: 042
     Dates: start: 20170602
  5. OXALIPLATIN. [Suspect]
     Active Substance: OXALIPLATIN
     Dosage: 85 MG/M2, BIW (2 WEEK)
     Route: 042
     Dates: start: 20170630
  6. 5-FLUOROURACIL [Suspect]
     Active Substance: FLUOROURACIL
     Indication: COLORECTAL CANCER
     Dosage: 400 MG/M2, BIW (2 WEEK)
     Route: 040
     Dates: start: 20170413
  7. BEVACIZUMAB. [Suspect]
     Active Substance: BEVACIZUMAB
     Indication: COLORECTAL CANCER
     Dosage: 5 MG/KG, BIW
     Route: 042
     Dates: start: 20170413
  8. LEUCOVORIN. [Suspect]
     Active Substance: LEUCOVORIN
     Dosage: 400 MG/M2, BIW (2 WEEK)
     Route: 042
     Dates: start: 20170630

REACTIONS (1)
  - Atrial fibrillation [Not Recovered/Not Resolved]

NARRATIVE: CASE EVENT DATE: 20170730
